FAERS Safety Report 5152342-2 (Version None)
Quarter: 2006Q4

REPORT INFORMATION
  Report Type: 
  Country: None (occurrence: None)
  Receive Date: 20061116
  Receipt Date: 20061023
  Transmission Date: 20070319
  Serious: Yes (Death, Hospitalization)
  Sender: FDA-Public Use
  Company Number: US-SANOFI-SYNTHELABO-F03200600229

PATIENT
  Age: 959 Month
  Sex: Female
  Weight: 55 kg

DRUGS (8)
  1. OXALIPLATIN [Suspect]
     Indication: COLORECTAL CANCER
     Route: 042
     Dates: start: 20061012, end: 20061012
  2. KYTRIL [Concomitant]
     Dosage: UNK
     Route: 065
  3. IMODIUM [Concomitant]
     Dosage: UNK
     Route: 048
  4. DEXAMETHASONE TAB [Concomitant]
     Dosage: UNK
     Route: 065
  5. ARANESP [Concomitant]
     Dosage: UNK
     Route: 058
  6. ALOXI [Concomitant]
     Dosage: UNK
     Route: 042
  7. IRINOTECAN HCL [Suspect]
     Indication: COLORECTAL CANCER
     Route: 042
     Dates: start: 20061012, end: 20061012
  8. BEVACIZUMAB [Suspect]
     Indication: COLORECTAL CANCER
     Route: 042
     Dates: start: 20061012, end: 20061012

REACTIONS (8)
  - AGRANULOCYTOSIS [None]
  - DEHYDRATION [None]
  - EMPYEMA [None]
  - FATIGUE [None]
  - PLEURAL EFFUSION [None]
  - PLEURAL INFECTION [None]
  - PNEUMONITIS [None]
  - RESPIRATORY FAILURE [None]
